FAERS Safety Report 22370062 (Version 1)
Quarter: 2023Q2

REPORT INFORMATION
  Report Type: Spontaneous
  Country: US (occurrence: US)
  Receive Date: 20230526
  Receipt Date: 20230526
  Transmission Date: 20230722
  Serious: Yes (Hospitalization)
  Sender: FDA-Public Use
  Company Number: US-NOVOPROD-1066292

PATIENT
  Sex: Female

DRUGS (2)
  1. OZEMPIC [Suspect]
     Active Substance: SEMAGLUTIDE
     Indication: Diabetes mellitus
     Dosage: 0.25 OR 0.50MG
     Route: 058
     Dates: end: 202305
  2. NovoFine Plus 4mm (32G) [Concomitant]
     Indication: Diabetes mellitus
     Dosage: UNK
     Route: 058

REACTIONS (3)
  - Gastrointestinal neoplasm [Unknown]
  - Depression [Unknown]
  - Drug titration error [Unknown]

NARRATIVE: CASE EVENT DATE: 20220201
